FAERS Safety Report 4739719-1 (Version None)
Quarter: 2005Q3

REPORT INFORMATION
  Report Type: 
  Country: None (occurrence: None)
  Receive Date: 20050810
  Receipt Date: 20050502
  Transmission Date: 20060218
  Serious: No
  Sender: FDA-Public Use
  Company Number: US-GLAXOSMITHKLINE-A0556943A

PATIENT
  Age: 27 Year
  Sex: Female

DRUGS (4)
  1. PAXIL [Suspect]
     Indication: MENTAL DISABILITY
     Dosage: 20MG PER DAY
     Route: 048
  2. TRIHEXYPHENIDYL HCL [Concomitant]
  3. TRILEPTAL [Concomitant]
  4. AMANTADINE [Concomitant]

REACTIONS (9)
  - AGGRESSION [None]
  - ANOREXIA [None]
  - CRYING [None]
  - DRUG INEFFECTIVE [None]
  - DYSPHONIA [None]
  - HUNGER [None]
  - IRRITABILITY [None]
  - NERVOUSNESS [None]
  - TREMOR [None]
